FAERS Safety Report 6463203-0 (Version None)
Quarter: 2009Q4

REPORT INFORMATION
  Report Type: 
  Country: None (occurrence: None)
  Receive Date: 20091123
  Receipt Date: 20091109
  Transmission Date: 20100525
  Serious: Yes (Life-Threatening, Hospitalization, Other)
  Sender: FDA-Public Use
  Company Number: 1000010210

PATIENT
  Sex: Male

DRUGS (1)
  1. ESCITALOPRAM [Suspect]
     Dosage: 5 MG (5 MG, 1 IN 1 D), TRANSPLACENTAL; 20 MG (20 MG, 1 IN 1 D), TRANSPLACENTAL
     Route: 064

REACTIONS (7)
  - APGAR SCORE LOW [None]
  - HYPOPHAGIA [None]
  - INSOMNIA [None]
  - IRRITABILITY [None]
  - MATERNAL DRUGS AFFECTING FOETUS [None]
  - NEONATAL ANOXIA [None]
  - WEIGHT DECREASED [None]
